FAERS Safety Report 8224189-1 (Version None)
Quarter: 2012Q1

REPORT INFORMATION
  Report Type: 
  Country: None (occurrence: None)
  Receive Date: 20120321
  Receipt Date: 20120313
  Transmission Date: 20120608
  Serious: Yes (Death, Hospitalization)
  Sender: FDA-Public Use
  Company Number: RO-BRISTOL-MYERS SQUIBB COMPANY-16452625

PATIENT
  Age: 52 Year
  Sex: Male

DRUGS (1)
  1. YERVOY [Suspect]
     Indication: METASTATIC MALIGNANT MELANOMA
     Dosage: 3MG/KG,SINGLE ADMINISTRATION
     Route: 042
     Dates: start: 20120206, end: 20120206

REACTIONS (2)
  - MANIA [None]
  - METASTASES TO CENTRAL NERVOUS SYSTEM [None]
